FAERS Safety Report 15789119 (Version 4)
Quarter: 2019Q4

REPORT INFORMATION
  Report Type: Spontaneous
  Country: US (occurrence: US)
  Receive Date: 20190104
  Receipt Date: 20191217
  Transmission Date: 20200122
  Serious: No
  Sender: FDA-Public Use
  Company Number: US-PFIZER INC-2019003458

PATIENT
  Age: 83 Year
  Sex: Female
  Weight: 76 kg

DRUGS (1)
  1. IBRANCE [Suspect]
     Active Substance: PALBOCICLIB
     Indication: BREAST CANCER FEMALE
     Dosage: 100 MG, UNK
     Dates: start: 2014

REACTIONS (3)
  - Anxiety [Unknown]
  - Confusional state [Unknown]
  - Hypoacusis [Unknown]
